FAERS Safety Report 6059103-0 (Version None)
Quarter: 2009Q1

REPORT INFORMATION
  Report Type: 
  Country: None (occurrence: None)
  Receive Date: 20090130
  Receipt Date: 20090120
  Transmission Date: 20090719
  Serious: Yes (Hospitalization)
  Sender: FDA-Public Use
  Company Number: FR-PFIZER INC-2008155571

PATIENT

DRUGS (14)
  1. VFEND [Suspect]
     Indication: ASPERGILLOSIS
     Dosage: 320 MG, 2X/DAY,EVERYDAY
     Route: 042
     Dates: start: 20081113
  2. CELLCEPT [Interacting]
     Dosage: 750 MG, 2X/DAY
     Route: 042
     Dates: start: 20081114
  3. PROGRAF [Interacting]
     Dosage: 3.5 MG, 2X/DAY
     Dates: start: 20081114
  4. OMEPRAZOLE [Interacting]
     Dosage: 20 MG, 2X/DAY
     Route: 042
     Dates: start: 20081113, end: 20081116
  5. METHYLPREDNISOLONE [Interacting]
     Dosage: 22 MG, 3X/DAY
     Route: 042
     Dates: start: 20081114
  6. ACICLOVIR [Interacting]
     Dosage: 330 MG, 3X/DAY
     Route: 042
     Dates: start: 20081113, end: 20081124
  7. MORPHINE SULFATE [Concomitant]
  8. AMOXICILLIN + CLAVULANATE POTASSIUM [Concomitant]
  9. ACUPAN [Concomitant]
  10. KETAMINE HYDROCHLORIDE [Concomitant]
  11. PARACETAMOL [Concomitant]
  12. LANTUS [Concomitant]
  13. COLIMYCIN [Concomitant]
  14. NOVORAPID [Concomitant]

REACTIONS (4)
  - CONVULSION [None]
  - DRUG EFFECT INCREASED [None]
  - DRUG INTERACTION [None]
  - LIVER DISORDER [None]
